FAERS Safety Report 6650109-7 (Version None)
Quarter: 2010Q1

REPORT INFORMATION
  Report Type: 
  Country: None (occurrence: None)
  Receive Date: 20100325
  Receipt Date: 20091202
  Transmission Date: 20100710
  Serious: No
  Sender: FDA-Public Use
  Company Number: US-KINGPHARMUSA00001-K200901535

PATIENT
  Age: 90 Year
  Sex: Female

DRUGS (5)
  1. ALTACE [Suspect]
     Indication: HYPERTENSION
     Dosage: 10 MG, QD
     Route: 048
     Dates: start: 20080901, end: 20091202
  2. TOPROL-XL [Concomitant]
     Indication: CORONARY ARTERY OCCLUSION
     Dosage: 25 MG, QD
     Route: 048
     Dates: start: 20010101
  3. LIPITOR [Concomitant]
     Indication: BLOOD CHOLESTEROL INCREASED
     Dosage: 10 MG, QD
     Route: 048
     Dates: start: 20010101
  4. ECOTRIN [Concomitant]
     Dosage: 81 MG, QD
     Route: 048
     Dates: start: 20010101
  5. PROTONIX [Concomitant]
     Dosage: 40 MG, QD
     Route: 048
     Dates: start: 20010101

REACTIONS (4)
  - FEELING HOT [None]
  - OEDEMA PERIPHERAL [None]
  - WOUND COMPLICATION [None]
  - WOUND SECRETION [None]
